FAERS Safety Report 10350328 (Version 1)
Quarter: 2014Q3

REPORT INFORMATION
  Report Type: Spontaneous
  Country: GB (occurrence: GB)
  Receive Date: 20140730
  Receipt Date: 20140730
  Transmission Date: 20150326
  Serious: Yes (Hospitalization, Other)
  Sender: FDA-Public Use
  Company Number: GB-PFIZER INC-2014210760

PATIENT
  Age: 24 Year
  Sex: Female
  Weight: 77.56 kg

DRUGS (1)
  1. SERTRALINE HCL [Suspect]
     Active Substance: SERTRALINE HYDROCHLORIDE
     Indication: ANXIETY
     Dosage: 150 MG, UNK
     Route: 048

REACTIONS (6)
  - Gastrooesophageal reflux disease [Recovering/Resolving]
  - Oesophageal injury [Recovering/Resolving]
  - Apathy [Recovering/Resolving]
  - Depression [Recovered/Resolved]
  - Depression suicidal [Recovered/Resolved]
  - Flat affect [Recovered/Resolved]
